FAERS Safety Report 16688399 (Version 9)
Quarter: 2020Q2

REPORT INFORMATION
  Report Type: Spontaneous
  Country: US (occurrence: US)
  Receive Date: 20190809
  Receipt Date: 20200423
  Transmission Date: 20200713
  Serious: Yes (Other)
  Sender: FDA-Public Use
  Company Number: US-GLAXOSMITHKLINE-US2019AMR142854

PATIENT
  Age: 36 Year
  Sex: Female

DRUGS (5)
  1. CYTOXIN [Suspect]
     Active Substance: CYCLOPHOSPHAMIDE
     Indication: PRODUCT USED FOR UNKNOWN INDICATION
     Dosage: UNK
     Route: 065
  2. NUCALA [Suspect]
     Active Substance: MEPOLIZUMAB
     Indication: EOSINOPHILIC GRANULOMATOSIS WITH POLYANGIITIS
     Dosage: 300 MG, EVERY 28 DAYS
     Route: 058
     Dates: start: 20150203
  3. LYRICA [Suspect]
     Active Substance: PREGABALIN
     Indication: PRODUCT USED FOR UNKNOWN INDICATION
     Dosage: UNK
     Route: 065
  4. NUCALA [Suspect]
     Active Substance: MEPOLIZUMAB
     Indication: ASTHMA
  5. PREDNISONE. [Suspect]
     Active Substance: PREDNISONE
     Indication: ADRENAL INSUFFICIENCY
     Dosage: UNK
     Route: 065

REACTIONS (51)
  - Cardiovascular disorder [Unknown]
  - White blood cell count increased [Unknown]
  - Traumatic lung injury [Unknown]
  - Musculoskeletal discomfort [Unknown]
  - Injury [Unknown]
  - Dyspnoea [Unknown]
  - Skin discolouration [Unknown]
  - High frequency ablation [Unknown]
  - Herpes zoster [Unknown]
  - Mononeuropathy multiplex [Unknown]
  - Blood test abnormal [Unknown]
  - Feeling abnormal [Unknown]
  - Suicidal ideation [Recovered/Resolved]
  - Adrenal insufficiency [Unknown]
  - Neuropathy peripheral [Unknown]
  - Burning sensation [Unknown]
  - Food allergy [Unknown]
  - Adverse drug reaction [Recovered/Resolved]
  - Sinusitis [Unknown]
  - Gait disturbance [Unknown]
  - Intervertebral disc degeneration [Unknown]
  - Paraesthesia [Unknown]
  - Atypical pneumonia [Unknown]
  - Pneumonia [Unknown]
  - Nasopharyngitis [Unknown]
  - Arthritis [Unknown]
  - Vomiting [Unknown]
  - Intentional overdose [Unknown]
  - Eczema [Unknown]
  - Knee operation [Unknown]
  - Hypersomnia [Unknown]
  - Nerve compression [Unknown]
  - Lung disorder [Unknown]
  - Cataract [Unknown]
  - Multiple allergies [Unknown]
  - Insomnia [Unknown]
  - Tooth loss [Unknown]
  - Osteoarthritis [Unknown]
  - Ill-defined disorder [Unknown]
  - Ear infection [Unknown]
  - Colitis [Unknown]
  - Pain [Unknown]
  - Pyrexia [Unknown]
  - Osteoporosis [Unknown]
  - Neuralgia [Unknown]
  - Joint swelling [Unknown]
  - Gastritis [Unknown]
  - Arthropathy [Unknown]
  - Contusion [Unknown]
  - Malaise [Unknown]
  - Fatigue [Unknown]

NARRATIVE: CASE EVENT DATE: 20200303
